FAERS Safety Report 11708562 (Version 2)
Quarter: 2015Q4

REPORT INFORMATION
  Report Type: Spontaneous
  Country: US (occurrence: US)
  Receive Date: 20151104
  Receipt Date: 20151110
  Transmission Date: 20160304
  Serious: No
  Sender: FDA-Public Use
  Company Number: US-ELI_LILLY_AND_COMPANY-US201102005878

PATIENT
  Age: 69 Year
  Sex: Male

DRUGS (7)
  1. FORTEO [Suspect]
     Active Substance: TERIPARATIDE
     Dosage: 20 UG, QD
     Route: 058
     Dates: end: 20110923
  2. FORTEO [Suspect]
     Active Substance: TERIPARATIDE
     Dosage: 20 UG, QD
     Route: 058
  3. FORTEO [Suspect]
     Active Substance: TERIPARATIDE
     Dosage: 20 UG, QD
     Route: 058
  4. FORTEO [Suspect]
     Active Substance: TERIPARATIDE
     Dosage: 20 UG, QD
     Route: 058
  5. FORTEO [Suspect]
     Active Substance: TERIPARATIDE
     Dosage: 20 UG, DAILY (1/D)
     Route: 058
     Dates: start: 20110226
  6. FORTEO [Suspect]
     Active Substance: TERIPARATIDE
     Indication: OSTEOPOROSIS
     Dosage: 20 UG, DAILY (1/D)
     Route: 058
     Dates: start: 20110205, end: 20110217
  7. FORTEO [Suspect]
     Active Substance: TERIPARATIDE
     Dosage: 20 UG, QD
     Route: 058

REACTIONS (14)
  - Pain [Recovered/Resolved]
  - Intentional product misuse [Recovered/Resolved]
  - Muscular weakness [Not Recovered/Not Resolved]
  - Malaise [Not Recovered/Not Resolved]
  - Tendonitis [Unknown]
  - Asthenia [Recovered/Resolved]
  - Pain in extremity [Recovered/Resolved]
  - Headache [Recovered/Resolved]
  - Muscle spasms [Recovered/Resolved]
  - Feeling abnormal [Not Recovered/Not Resolved]
  - Arthralgia [Unknown]
  - Blood calcium increased [Recovered/Resolved]
  - Blood calcium increased [Not Recovered/Not Resolved]
  - Gait disturbance [Unknown]

NARRATIVE: CASE EVENT DATE: 201109
